FAERS Safety Report 17666292 (Version 2)
Quarter: 2020Q2

REPORT INFORMATION
  Report Type: Spontaneous
  Country: US (occurrence: US)
  Receive Date: 20200414
  Receipt Date: 20200422
  Transmission Date: 20200713
  Serious: Yes (Other)
  Sender: FDA-Public Use
  Company Number: US-PFIZER INC-2020150296

PATIENT
  Age: 81 Year
  Sex: Female

DRUGS (3)
  1. CHLORDIAZEPOXIDE/CLIDINIUM [Concomitant]
     Active Substance: CHLORDIAZEPOXIDE\CLIDINIUM
     Indication: GASTRIC DISORDER
     Dosage: 5-250 CAPSULE, THREE TIMES A DAY, SOMETIMES ONCE OR TWICE A DAY
  2. CHLORDIAZEPOXIDE/CLIDINIUM [Concomitant]
     Active Substance: CHLORDIAZEPOXIDE\CLIDINIUM
     Indication: COLECTOMY
  3. PREMARIN [Suspect]
     Active Substance: ESTROGENS, CONJUGATED
     Dosage: 0.625 MG, ONCE A DAY (0.625 MG TABLET EVERY MORNING)

REACTIONS (10)
  - Intentional product misuse [Unknown]
  - Alopecia [Unknown]
  - Feeling abnormal [Unknown]
  - Benign breast neoplasm [Unknown]
  - Heart rate decreased [Unknown]
  - Depression [Unknown]
  - Gastrooesophageal reflux disease [Unknown]
  - Stress [Not Recovered/Not Resolved]
  - Onychomadesis [Unknown]
  - Malaise [Unknown]
